FAERS Safety Report 14484449 (Version 3)
Quarter: 2019Q2

REPORT INFORMATION
  Report Type: Report from Study
  Country: BE (occurrence: BE)
  Receive Date: 20180205
  Receipt Date: 20190410
  Transmission Date: 20190711
  Serious: Yes (Hospitalization)
  Sender: FDA-Public Use
  Company Number: BE-IPSEN BIOPHARMACEUTICALS, INC.-2017-16335

PATIENT
  Age: 74 Year
  Sex: Female
  Weight: 53 kg

DRUGS (15)
  1. TRAMADOL. [Concomitant]
     Active Substance: TRAMADOL
     Dates: start: 201702
  2. PARACETAMOL [Concomitant]
     Active Substance: ACETAMINOPHEN
     Dates: start: 20180611
  3. OMEPRAZOLE. [Concomitant]
     Active Substance: OMEPRAZOLE
     Dosage: UNKNOWN
  4. FLUOROURACIL. [Suspect]
     Active Substance: FLUOROURACIL
     Route: 050
     Dates: start: 20170823, end: 2017
  5. ULTIBRO BREEZHALER [Concomitant]
     Active Substance: GLYCOPYRRONIUM\INDACATEROL
     Dosage: UNKNOWN
  6. AVASTIN [Suspect]
     Active Substance: BEVACIZUMAB
     Indication: COLORECTAL CANCER METASTATIC
     Route: 042
     Dates: start: 20170822, end: 2017
  7. LEUCOVORIN. [Suspect]
     Active Substance: LEUCOVORIN
     Route: 050
     Dates: start: 20170823, end: 2017
  8. LYRICA [Concomitant]
     Active Substance: PREGABALIN
     Dosage: UNKNOWN
  9. IRINOTECAN LIPOSOME [Suspect]
     Active Substance: IRINOTECAN
     Indication: COLORECTAL CANCER METASTATIC
     Dosage: 281 MG
     Route: 042
     Dates: start: 20170822
  10. IRINOTECAN LIPOSOME [Suspect]
     Active Substance: IRINOTECAN
     Indication: OFF LABEL USE
     Dosage: 281 MG
     Route: 042
  11. LEUCOVORIN. [Suspect]
     Active Substance: LEUCOVORIN
     Indication: COLORECTAL CANCER METASTATIC
     Route: 042
     Dates: start: 20170822, end: 2017
  12. AVASTIN [Suspect]
     Active Substance: BEVACIZUMAB
     Route: 050
     Dates: start: 20170823, end: 2017
  13. FLUOROURACIL. [Suspect]
     Active Substance: FLUOROURACIL
     Indication: COLORECTAL CANCER METASTATIC
     Route: 042
     Dates: start: 20170823, end: 2017
  14. IRINOTECAN LIPOSOME [Suspect]
     Active Substance: IRINOTECAN
     Dosage: 281 MG
     Route: 042
     Dates: end: 2017
  15. COVERSYL COMP [Concomitant]
     Active Substance: INDAPAMIDE\PERINDOPRIL
     Dates: start: 201611

REACTIONS (11)
  - Gastrointestinal stoma complication [Unknown]
  - Proctalgia [Unknown]
  - Anaemia [Unknown]
  - Diarrhoea [Not Recovered/Not Resolved]
  - Off label use [Unknown]
  - Inappropriate schedule of product administration [Unknown]
  - Fatigue [Unknown]
  - Gastrointestinal stoma complication [Recovered/Resolved]
  - Lacrimation increased [Not Recovered/Not Resolved]
  - Stomatitis [Not Recovered/Not Resolved]
  - Contusion [Unknown]

NARRATIVE: CASE EVENT DATE: 20170901
